FAERS Safety Report 8538187-1 (Version None)
Quarter: 2012Q3

REPORT INFORMATION
  Report Type: 
  Country: None (occurrence: None)
  Receive Date: 20120726
  Receipt Date: 20120723
  Transmission Date: 20120928
  Serious: Yes (Other)
  Sender: FDA-Public Use
  Company Number: US-BRISTOL-MYERS SQUIBB COMPANY-16256729

PATIENT
  Age: 57 Year
  Sex: Female

DRUGS (8)
  1. LAMICTAL [Concomitant]
  2. ADVAIR DISKUS 100/50 [Concomitant]
  3. ABILIFY [Suspect]
     Dosage: STARTED AS 5MG, THEN 7.5MG DOSE INCR TO 10MG (TAKEN FOR 3 MTHS)THEN 7.5MG AGAIN DK62680A,OCT2013
  4. TRANXENE [Concomitant]
  5. FLEXERIL [Concomitant]
  6. ZETIA [Concomitant]
  7. CYMBALTA [Concomitant]
  8. LISINOPRIL [Concomitant]

REACTIONS (2)
  - HERPES VIRUS INFECTION [None]
  - WRONG TECHNIQUE IN DRUG USAGE PROCESS [None]
